FAERS Safety Report 6016770-5 (Version None)
Quarter: 2008Q4

REPORT INFORMATION
  Report Type: 
  Country: None (occurrence: None)
  Receive Date: 20081218
  Receipt Date: 20081209
  Transmission Date: 20090506
  Serious: Yes (Hospitalization)
  Sender: FDA-Public Use
  Company Number: SPV1-2008-02721

PATIENT
  Age: 32 Year
  Sex: Male

DRUGS (4)
  1. VYVANSE [Suspect]
     Dosage: 70 MG, 1X/DAY:QD, ORAL
     Route: 048
     Dates: start: 20080801
  2. LISINOPRIL [Concomitant]
  3. LEXAPRO [Concomitant]
  4. VYTORIN [Concomitant]

REACTIONS (7)
  - DRUG ABUSE [None]
  - EXTRAPYRAMIDAL DISORDER [None]
  - HYPOTENSION [None]
  - INSOMNIA [None]
  - INTENTIONAL OVERDOSE [None]
  - MENTAL STATUS CHANGES [None]
  - RENAL FAILURE [None]
